FAERS Safety Report 5327868-9 (Version None)
Quarter: 2007Q2

REPORT INFORMATION
  Report Type: 
  Country: None (occurrence: None)
  Receive Date: 20070517
  Receipt Date: 20070507
  Transmission Date: 20071010
  Serious: Yes (Hospitalization)
  Sender: FDA-Public Use
  Company Number: HQWYE826221DEC06

PATIENT
  Age: 68 Year
  Sex: Male

DRUGS (8)
  1. INIPOMP [Suspect]
     Route: 048
     Dates: start: 20060801, end: 20061103
  2. LASIX [Suspect]
     Route: 048
     Dates: start: 20060801, end: 20061103
  3. ZYVOX [Suspect]
     Indication: MEDIASTINITIS
     Route: 048
     Dates: start: 20060927, end: 20061103
  4. LYSANXIA [Concomitant]
     Dosage: ^DF^, FREQUENCY UNKNOWN
     Route: 048
  5. CORDARONE [Concomitant]
     Dosage: ^DF^, FREQUENCY UNKNOWN
     Route: 048
  6. TENORMIN [Concomitant]
     Dosage: ^DF^, FREQUENCY UNKNOWN
     Route: 048
  7. CIPROFLOXACIN HCL [Suspect]
     Indication: MEDIASTINITIS
     Route: 048
     Dates: start: 20060927, end: 20061103
  8. ELISOR [Concomitant]
     Indication: HYPERCHOLESTEROLAEMIA
     Dosage: ^DF^, FREQUENCY UNKNOWN
     Route: 048

REACTIONS (2)
  - NEUTROPENIA [None]
  - THROMBOCYTOPENIA [None]
